FAERS Safety Report 9348421 (Version 1)
Quarter: 2013Q2

REPORT INFORMATION
  Report Type: Spontaneous
  Country: US (occurrence: US)
  Receive Date: 20130614
  Receipt Date: 20130614
  Transmission Date: 20140414
  Serious: No
  Sender: FDA-Public Use
  Company Number: US-PFIZER INC-2013175227

PATIENT
  Sex: Female

DRUGS (1)
  1. LEVOXYL [Suspect]
     Indication: HYPERTHYROIDISM
     Dosage: UNK

REACTIONS (5)
  - Heart rate increased [Unknown]
  - Erythema [Unknown]
  - Tremor [Unknown]
  - Micturition disorder [Unknown]
  - Gastrointestinal motility disorder [Unknown]
